FAERS Safety Report 6637785-X (Version None)
Quarter: 2010Q1

REPORT INFORMATION
  Report Type: 
  Country: None (occurrence: None)
  Receive Date: 20100315
  Receipt Date: 20100315
  Transmission Date: 20100710
  Serious: No
  Sender: FDA-Public Use
  Company Number: None

PATIENT
  Age: 65 Year
  Sex: Female
  Weight: 61.2356 kg

DRUGS (1)
  1. FOSAMAX [Suspect]
     Indication: OSTEOPOROSIS
     Dosage: 1 TABLET PER WEEK PO
     Route: 048
     Dates: start: 20070114, end: 20071020

REACTIONS (2)
  - ARTHRITIS [None]
  - MUSCULOSKELETAL STIFFNESS [None]
